FAERS Safety Report 24424256 (Version 2)
Quarter: 2024Q4

REPORT INFORMATION
  Report Type: Spontaneous
  Country: FR (occurrence: FR)
  Receive Date: 20241010
  Receipt Date: 20241126
  Transmission Date: 20250115
  Serious: Yes (Death, Hospitalization, Other)
  Sender: SANDOZ
  Company Number: FR-NOVPHSZ-PHHY2018FR086861

PATIENT
  Age: 76 Year
  Sex: Female

DRUGS (3)
  1. CLOBETASOL PROPIONATE [Suspect]
     Active Substance: CLOBETASOL PROPIONATE
     Dosage: 10 G, QD, TAPERED AT TIMES TO 10 G/DAY
     Route: 061
  2. CLOBETASOL PROPIONATE [Suspect]
     Active Substance: CLOBETASOL PROPIONATE
     Indication: Pemphigoid
     Dosage: 30 G, QD, TAPERED AT TIMES TO 10 G/DAY
     Route: 061
  3. MYCOPHENOLATE MOFETIL [Suspect]
     Active Substance: MYCOPHENOLATE MOFETIL
     Indication: Pemphigoid
     Dosage: 2 G, QD (DAILY STARTED ON MONTH 08)
     Route: 065

REACTIONS (12)
  - Necrotising fasciitis [Fatal]
  - Staphylococcal infection [Fatal]
  - Diabetes mellitus [Fatal]
  - Septic shock [Fatal]
  - C-reactive protein increased [Unknown]
  - Rebound effect [Unknown]
  - Neutrophil count increased [Unknown]
  - Pemphigoid [Unknown]
  - Beta haemolytic streptococcal infection [Unknown]
  - White blood cell count increased [Unknown]
  - Streptococcal infection [Unknown]
  - Off label use [Unknown]
